FAERS Safety Report 14553884 (Version 1)
Quarter: 2018Q1

REPORT INFORMATION
  Report Type: Spontaneous
  Country: US (occurrence: US)
  Receive Date: 20180220
  Receipt Date: 20180220
  Transmission Date: 20180509
  Serious: Yes (Other)
  Sender: FDA-Public Use
  Company Number: US-SA-2018SA026190

PATIENT
  Sex: Male
  Weight: 106.5 kg

DRUGS (2)
  1. PRISTIQ EXTENDED-RELEASE [Suspect]
     Active Substance: DESVENLAFAXINE SUCCINATE
     Indication: DEPRESSION
     Route: 065
  2. PLAVIX [Suspect]
     Active Substance: CLOPIDOGREL BISULFATE
     Route: 048

REACTIONS (2)
  - Malaise [Unknown]
  - Leukaemia [Unknown]
